FAERS Safety Report 6387741-4 (Version None)
Quarter: 2009Q4

REPORT INFORMATION
  Report Type: 
  Country: None (occurrence: None)
  Receive Date: 20091005
  Receipt Date: 20090925
  Transmission Date: 20100525
  Serious: Yes (Life-Threatening, Hospitalization)
  Sender: FDA-Public Use
  Company Number: US-ROCHE-637989

PATIENT
  Sex: Female
  Weight: 51 kg

DRUGS (8)
  1. PEG-INTERFERON ALFA 2A (RO 25-8310) [Suspect]
     Dosage: DRUG WAS PERMANENTLY DISCONTINUED.
     Route: 058
     Dates: start: 20090206, end: 20090406
  2. RIBAVIRIN [Suspect]
     Dosage: TDD : 800 QD., DRUG WAS PERMANANTLY DISCONTINUED.
     Route: 048
     Dates: start: 20090206, end: 20090410
  3. METHADONE [Concomitant]
     Route: 048
  4. PREVACID [Concomitant]
     Route: 048
  5. REGLAN [Concomitant]
     Route: 048
  6. SYMBYAX [Concomitant]
     Dosage: TDD : 3/25 MG
     Route: 048
  7. ADVAIR DISKUS 100/50 [Concomitant]
     Dosage: DOSE : 500/ 50 MG.
     Route: 055
  8. RESTASIS [Concomitant]
     Dosage: REPORTED DRUG : RESTASIS BOTH EYES

REACTIONS (2)
  - ACUTE RESPIRATORY DISTRESS SYNDROME [None]
  - PNEUMONIA ASPIRATION [None]
